FAERS Safety Report 4720875-6 (Version None)
Quarter: 2005Q3

REPORT INFORMATION
  Report Type: 
  Country: None (occurrence: None)
  Receive Date: 20050720
  Receipt Date: 20050708
  Transmission Date: 20060218
  Serious: Yes (Other)
  Sender: FDA-Public Use
  Company Number: 2005098860

PATIENT
  Age: 17 Year
  Sex: Male

DRUGS (1)
  1. GEODON [Suspect]
     Indication: BIPOLAR DISORDER
     Dosage: 20 MG (20 MG,1 IN 1 D)

REACTIONS (2)
  - DYSTONIA [None]
  - LARYNGEAL DISORDER [None]
